FAERS Safety Report 9753625 (Version 5)
Quarter: 2014Q2

REPORT INFORMATION
  Report Type: Spontaneous
  Country: US (occurrence: None)
  Receive Date: 20131211
  Receipt Date: 20140617
  Transmission Date: 20141212
  Serious: Yes (Hospitalization, Other)
  Sender: FDA-Public Use
  Company Number: US-000871

PATIENT
  Age: 65 Year
  Sex: Male
  Weight: 82.78 kg

DRUGS (10)
  1. GATTEX [Suspect]
     Indication: SHORT-BOWEL SYNDROME
     Dosage: (0.32 ML QD, STREN/VOLUME:  0.32 ML |FREQU:  1 X DAY SUBCUTANEOUS)
     Route: 058
     Dates: start: 20131114, end: 20131126
  2. LOMOTIL/00034001/ [Concomitant]
  3. FOLIC ACID (??/??/2011 TO) [Concomitant]
  4. XANAX [Concomitant]
  5. NEXIUM /01479302/ [Concomitant]
  6. GABAPENTIN [Concomitant]
  7. SOLUTIONS FOR PARENTERAL NUTRITION ( TO ??/??/2013, ??/??/2013 TO CONTINUING) [Concomitant]
  8. ASPIRIN [Concomitant]
  9. HUMIRA [Suspect]
  10. MUCINEX [Suspect]
     Indication: COUGH
     Dosage: 1 DF QD, STREN/VOLUM: 1 TABLET|FREQU: AT BEDTIME

REACTIONS (11)
  - Dyspnoea [None]
  - Weight increased [None]
  - Convulsion [None]
  - Electrolyte imbalance [None]
  - Pneumonia [None]
  - Loss of consciousness [None]
  - Rhinovirus infection [None]
  - Transient ischaemic attack [None]
  - Drug dose omission [None]
  - Gastrointestinal stoma complication [None]
  - Atypical pneumonia [None]
